FAERS Safety Report 20367194 (Version 1)
Quarter: 2022Q1

REPORT INFORMATION
  Report Type: Spontaneous
  Country: US (occurrence: US)
  Receive Date: 20220123
  Receipt Date: 20220123
  Transmission Date: 20220424
  Serious: Yes (Other)
  Sender: FDA-Public Use
  Company Number: US-JNJFOC-20220121739

PATIENT
  Age: 25 Year
  Sex: Female

DRUGS (3)
  1. NEUTROGENA TGEL THERAPEUTIC [Suspect]
     Active Substance: COAL TAR
     Indication: Pruritus
     Dosage: QUARTER (COIN) SIZE AMOUNT - WASHED/RINSED/REPEATED - TWICE A WEEK
     Route: 061
     Dates: start: 20200501
  2. NEUTROGENA TGEL THERAPEUTIC [Suspect]
     Active Substance: COAL TAR
     Indication: Skin exfoliation
  3. NEUTROGENA TGEL THERAPEUTIC [Suspect]
     Active Substance: COAL TAR
     Indication: Skin irritation

REACTIONS (2)
  - Folliculitis [Recovered/Resolved]
  - Alopecia [Recovered/Resolved]

NARRATIVE: CASE EVENT DATE: 20201001
